FAERS Safety Report 4508691-1 (Version None)
Quarter: 2004Q4

REPORT INFORMATION
  Report Type: 
  Country: None (occurrence: None)
  Receive Date: 20041118
  Receipt Date: 20041102
  Transmission Date: 20050328
  Serious: Yes (Hospitalization)
  Sender: FDA-Public Use
  Company Number: 1999-BP-00535

PATIENT
  Age: 1 Day
  Sex: 0

DRUGS (1)
  1. VIRAMUNE [Suspect]
     Indication: PROPHYLAXIS AGAINST HIV INFECTION
     Dosage: 200 MG (200 MG SINGLE MATERNAL DOSE) PO
     Route: 048
     Dates: start: 19990312, end: 19990312

REACTIONS (5)
  - APGAR SCORE LOW [None]
  - DRUG EXPOSURE DURING PREGNANCY [None]
  - MECONIUM STAIN [None]
  - PROLONGED PREGNANCY [None]
  - TRANSIENT TACHYPNOEA OF THE NEWBORN [None]
